FAERS Safety Report 8563900-7 (Version None)
Quarter: 2012Q3

REPORT INFORMATION
  Report Type: 
  Country: None (occurrence: None)
  Receive Date: 20120727
  Receipt Date: 20120727
  Transmission Date: 20120928
  Serious: Yes (Life-Threatening, Other)
  Sender: FDA-Public Use
  Company Number: None

PATIENT
  Sex: Female

DRUGS (1)
  1. LEXAPRO [Suspect]
     Indication: DEPRESSION
     Dosage: 10 MG ONCE A DAY, PO
     Route: 048

REACTIONS (4)
  - FEELING ABNORMAL [None]
  - SUICIDAL IDEATION [None]
  - VITAMIN D [None]
  - THOUGHT BLOCKING [None]
